FAERS Safety Report 7956886-7 (Version None)
Quarter: 2011Q4

REPORT INFORMATION
  Report Type: 
  Country: None (occurrence: None)
  Receive Date: 20111130
  Receipt Date: 20111114
  Transmission Date: 20120403
  Serious: Yes (Hospitalization)
  Sender: FDA-Public Use
  Company Number: TCI2011A06098

PATIENT
  Age: 61 Year
  Sex: Male

DRUGS (7)
  1. ACTOS [Suspect]
     Indication: DIABETES MELLITUS
     Dosage: 30 MG (30 MG, 1 D) PER ORAL
     Route: 048
     Dates: start: 20091112, end: 20111014
  2. DIOVAN [Concomitant]
  3. ASPIRIN [Concomitant]
  4. NOVOLOG [Concomitant]
  5. NORVASC [Concomitant]
  6. LANTUS [Concomitant]
  7. CRESTOR [Concomitant]

REACTIONS (3)
  - URINE CYTOLOGY ABNORMAL [None]
  - HAEMATURIA [None]
  - BLADDER CANCER [None]
